FAERS Safety Report 6915863-5 (Version None)
Quarter: 2010Q3

REPORT INFORMATION
  Report Type: 
  Country: None (occurrence: None)
  Receive Date: 20100804
  Receipt Date: 20100723
  Transmission Date: 20110219
  Serious: Yes (Other)
  Sender: FDA-Public Use
  Company Number: 652747

PATIENT
  Age: 59 Year
  Sex: Female
  Weight: 34.0198 kg

DRUGS (2)
  1. (ONDANSETRON) [Suspect]
     Indication: PROPHYLAXIS
     Dosage: 4 MG MILLIGRAM(S), INTRAVENOUS
     Route: 042
     Dates: start: 20100702, end: 20100702
  2. (DOMPERIDONE) [Suspect]
     Indication: PROPHYLAXIS
     Dosage: 20 MG MILLIGRAM(S), ORAL
     Route: 048
     Dates: start: 20100702, end: 20100702

REACTIONS (1)
  - ATRIOVENTRICULAR BLOCK COMPLETE [None]
